FAERS Safety Report 9752619 (Version 1)
Quarter: 2013Q4

REPORT INFORMATION
  Report Type: Not Available
  Country: US (occurrence: US)
  Receive Date: 20131213
  Receipt Date: 20131213
  Transmission Date: 20140711
  Serious: Yes (Hospitalization, Other)
  Sender: FDA-Public Use
  Company Number: US-VIROPHARMA INCORPORATED-20131202CINRY5452

PATIENT
  Age: 47 Year
  Sex: Female

DRUGS (6)
  1. CINRYZE (C1 ESTERASE INHIBITOR (HUMAN)) [Suspect]
     Indication: HEREDITARY ANGIOEDEMA
     Route: 042
     Dates: start: 2008
  2. CINRYZE (C1 ESTERASE INHIBITOR (HUMAN)) [Suspect]
     Indication: PROPHYLAXIS
  3. COUMADIN [Suspect]
     Indication: PULMONARY EMBOLISM
     Dosage: UNKNOWN
     Route: 065
     Dates: start: 2011
  4. COUMADIN [Suspect]
     Indication: EMBOLISM
  5. DANAZOL [Suspect]
     Indication: HEREDITARY ANGIOEDEMA
     Dosage: UNKNOWN
     Route: 065
  6. DILANTIN [Suspect]
     Indication: EPILEPSY
     Dosage: UNKNOWN
     Route: 065

REACTIONS (7)
  - Pulmonary embolism [Unknown]
  - Embolism [Unknown]
  - International normalised ratio increased [Recovered/Resolved]
  - Nephrolithiasis [Recovering/Resolving]
  - Lip haemorrhage [Recovered/Resolved]
  - Lip injury [Recovered/Resolved]
  - Inappropriate schedule of drug administration [Not Recovered/Not Resolved]
